FAERS Safety Report 8418828-X (Version None)
Quarter: 2012Q2

REPORT INFORMATION
  Report Type: 
  Country: None (occurrence: None)
  Receive Date: 20120607
  Receipt Date: 20120529
  Transmission Date: 20120825
  Serious: Yes (Disabling)
  Sender: FDA-Public Use
  Company Number: DK-ASTRAZENECA-2012SE34513

PATIENT
  Age: 75 Year
  Sex: Female
  Weight: 75 kg

DRUGS (6)
  1. ATORVASTATIN CALCIUM [Interacting]
  2. ASPIRIN [Interacting]
  3. BRILINTA [Suspect]
     Indication: THROMBOSIS PROPHYLAXIS
     Route: 048
     Dates: start: 20120319, end: 20120101
  4. NITROGLYCERIN [Concomitant]
  5. CENTYL MED KALIUMKLORID [Concomitant]
     Indication: OEDEMA
  6. LYRICA [Concomitant]

REACTIONS (5)
  - DRUG INTERACTION [None]
  - DEMENTIA [None]
  - HAEMATOMA [None]
  - OEDEMA [None]
  - DIZZINESS [None]
